FAERS Safety Report 8070794-5 (Version None)
Quarter: 2012Q1

REPORT INFORMATION
  Report Type: 
  Country: None (occurrence: None)
  Receive Date: 20120125
  Receipt Date: 20120120
  Transmission Date: 20120608
  Serious: Yes (Hospitalization)
  Sender: FDA-Public Use
  Company Number: US-GLAXOSMITHKLINE-A0893046A

PATIENT
  Age: 71 Year
  Sex: Female
  Weight: 80.9 kg

DRUGS (3)
  1. AVANDIA [Suspect]
     Indication: DIABETES MELLITUS
     Dosage: 4MG PER DAY
     Route: 048
  2. CARDIZEM [Concomitant]
  3. CRESTOR [Concomitant]

REACTIONS (3)
  - PAIN IN EXTREMITY [None]
  - ARRHYTHMIA [None]
  - OEDEMA PERIPHERAL [None]
